FAERS Safety Report 15289899 (Version 1)
Quarter: 2018Q3

REPORT INFORMATION
  Report Type: Spontaneous
  Country: FR (occurrence: FR)
  Receive Date: 20180817
  Receipt Date: 20180817
  Transmission Date: 20181010
  Serious: Yes (Death, Hospitalization)
  Sender: FDA-Public Use
  Company Number: FR-PFIZER INC-2018328689

PATIENT
  Age: 92 Year
  Sex: Female
  Weight: 79 kg

DRUGS (4)
  1. COUMADINE [Suspect]
     Active Substance: WARFARIN SODIUM
     Indication: ATRIAL FIBRILLATION
     Dosage: UNK
     Route: 048
     Dates: end: 20171024
  2. DALACINE [Suspect]
     Active Substance: CLINDAMYCIN
     Indication: ERYSIPELAS
     Dosage: UNK
     Route: 048
     Dates: start: 201710, end: 201710
  3. AUGMENTIN [Suspect]
     Active Substance: AMOXICILLIN\CLAVULANATE POTASSIUM
     Indication: ERYSIPELAS
     Dosage: UNK
     Route: 048
     Dates: start: 201710, end: 201710
  4. CEFTRIAXONE SODIUM. [Suspect]
     Active Substance: CEFTRIAXONE SODIUM
     Indication: ERYSIPELAS
     Dosage: UNK
     Route: 030
     Dates: start: 201710, end: 201710

REACTIONS (3)
  - Coagulation factor deficiency [Fatal]
  - Haemorrhagic diathesis [Fatal]
  - Circulating anticoagulant positive [Fatal]

NARRATIVE: CASE EVENT DATE: 20171024
